FAERS Safety Report 4775555-8 (Version None)
Quarter: 2005Q3

REPORT INFORMATION
  Report Type: 
  Country: None (occurrence: None)
  Receive Date: 20050922
  Receipt Date: 20050819
  Transmission Date: 20060218
  Serious: Yes (Hospitalization)
  Sender: FDA-Public Use
  Company Number: 200511865DE

PATIENT
  Age: 65 Year
  Sex: Female

DRUGS (9)
  1. TAXOTERE [Suspect]
     Indication: BREAST CANCER
     Route: 042
     Dates: start: 20050810, end: 20050810
  2. ADRIAMYCIN PFS [Suspect]
     Indication: BREAST CANCER
     Route: 042
     Dates: start: 20050810, end: 20050810
  3. CYCLOPHOSPHAMIDE [Suspect]
     Indication: BREAST CANCER
     Route: 042
     Dates: start: 20050810, end: 20050810
  4. MESNA [Suspect]
     Route: 042
     Dates: start: 20050810, end: 20050810
  5. ELOBACT [Concomitant]
     Route: 048
  6. ATACAND HCT [Concomitant]
     Indication: HYPERTENSION
  7. PENTAERYTHRITOL TETRANITRATE [Concomitant]
     Indication: CARDIAC DISORDER
  8. DOXEPIN HCL [Concomitant]
     Indication: DEPRESSION
  9. ZOPICLON [Concomitant]
     Indication: DEPRESSION

REACTIONS (9)
  - ABDOMINAL PAIN UPPER [None]
  - CARDIAC DISORDER [None]
  - DIARRHOEA [None]
  - DYSPNOEA AT REST [None]
  - LEUKOPENIA [None]
  - MENTAL IMPAIRMENT [None]
  - NAUSEA [None]
  - THROMBOCYTOPENIA [None]
  - VOMITING [None]
